FAERS Safety Report 24836728 (Version 2)
Quarter: 2025Q1

REPORT INFORMATION
  Report Type: Spontaneous
  Country: US (occurrence: US)
  Receive Date: 20250113
  Receipt Date: 20250123
  Transmission Date: 20250408
  Serious: Yes (Death, Hospitalization)
  Sender: TEVA
  Company Number: US-TEVA-VS-3284710

PATIENT
  Age: 51 Year
  Sex: Female

DRUGS (2)
  1. LACTULOSE [Suspect]
     Active Substance: LACTULOSE
     Indication: Cirrhosis alcoholic
     Route: 065
  2. TERLIPRESSIN [Suspect]
     Active Substance: TERLIPRESSIN
     Indication: Hepatorenal syndrome
     Route: 065

REACTIONS (1)
  - Drug ineffective [Fatal]
